FAERS Safety Report 9099225 (Version 1)
Quarter: 2013Q1

REPORT INFORMATION
  Report Type: Spontaneous
  Country: US (occurrence: US)
  Receive Date: 20130214
  Receipt Date: 20130214
  Transmission Date: 20140127
  Serious: No
  Sender: FDA-Public Use
  Company Number: US-COVIDIEN/TYCO HEALTHCARE/MALLINCKRODT-T201300053

PATIENT
  Age: 56 Year
  Sex: Male
  Weight: 69.84 kg

DRUGS (4)
  1. FENTANYL TRANSDERMAL SYSTEM [Suspect]
     Indication: BACK PAIN
     Dosage: 75 UG/HR Q 48 HOURS
     Route: 062
     Dates: start: 20121230
  2. FENTANYL TRANSDERMAL SYSTEM [Suspect]
     Indication: PAIN IN EXTREMITY
  3. METOPROLIN [Concomitant]
     Indication: HYPERTENSION
     Dosage: UNK
  4. DILAUDID [Concomitant]
     Indication: BREAKTHROUGH PAIN
     Dosage: UNK

REACTIONS (5)
  - Sneezing [Recovered/Resolved]
  - Nausea [Recovered/Resolved]
  - Fatigue [Recovered/Resolved]
  - Insomnia [Recovered/Resolved]
  - Diarrhoea [Recovered/Resolved]
